FAERS Safety Report 4854836-3 (Version None)
Quarter: 2005Q4

REPORT INFORMATION
  Report Type: 
  Country: None (occurrence: None)
  Receive Date: 20051213
  Receipt Date: 20051130
  Transmission Date: 20060501
  Serious: Yes (Other)
  Sender: FDA-Public Use
  Company Number: 2005165081

PATIENT
  Age: 35 Year
  Sex: Male

DRUGS (7)
  1. NORVASC [Suspect]
     Indication: ILL-DEFINED DISORDER
     Dosage: ORAL
     Route: 048
  2. FAMOTIDINE [Concomitant]
  3. ALLOPURINOL [Concomitant]
  4. ADALAT [Concomitant]
  5. TENORMIN [Concomitant]
  6. CONIEL (BENIDIPINE HYDROCHLORIDE) [Concomitant]
  7. CARDNALIN (DOXAZOSIN) [Concomitant]

REACTIONS (1)
  - PNEUMONIA [None]
